FAERS Safety Report 15920294 (Version 1)
Quarter: 2019Q1

REPORT INFORMATION
  Report Type: Report from Study
  Country: CN (occurrence: CN)
  Receive Date: 20190205
  Receipt Date: 20190205
  Transmission Date: 20190417
  Serious: Yes (Other)
  Sender: FDA-Public Use
  Company Number: CN-MYLANLABS-2019M1010451

PATIENT

DRUGS (2)
  1. CISPLATIN. [Suspect]
     Active Substance: CISPLATIN
     Indication: NASOPHARYNGEAL CANCER
     Dosage: ON DAY 1, 22 AND 43 OF RADIOTHERAPY
     Route: 065
  2. FAMITINIB [Suspect]
     Active Substance: FAMITINIB
     Indication: NASOPHARYNGEAL CANCER
     Dosage: FOR 2 WEEKS FOLLOWED BY 7 WEEKS WITH CONCURRENT CHEMORADIOTHERAPY
     Route: 048

REACTIONS (2)
  - Hypertension [Unknown]
  - Toxicity to various agents [None]
